FAERS Safety Report 18081769 (Version 3)
Quarter: 2020Q3

REPORT INFORMATION
  Report Type: Report from Study
  Country: KR (occurrence: KR)
  Receive Date: 20200729
  Receipt Date: 20200907
  Transmission Date: 20201103
  Serious: Yes (Other)
  Sender: FDA-Public Use
  Company Number: KR-JNJFOC-20200722776

PATIENT

DRUGS (2)
  1. BEDAQUILINE [Suspect]
     Active Substance: BEDAQUILINE
     Indication: TUBERCULOSIS
     Route: 048
  2. DELAMANID [Suspect]
     Active Substance: DELAMANID
     Indication: TUBERCULOSIS
     Route: 065

REACTIONS (5)
  - Electrocardiogram QT prolonged [Unknown]
  - Treatment failure [Unknown]
  - Pruritus [Unknown]
  - Gastrointestinal disorder [Unknown]
  - Acute kidney injury [Unknown]
